FAERS Safety Report 11158320 (Version 2)
Quarter: 2015Q2

REPORT INFORMATION
  Report Type: Spontaneous
  Country: FR (occurrence: FR)
  Receive Date: 20150603
  Receipt Date: 20150617
  Transmission Date: 20150821
  Serious: Yes (Hospitalization)
  Sender: FDA-Public Use
  Company Number: FR-009507513-1506FRA000084

PATIENT
  Age: 19 Year
  Sex: Male

DRUGS (9)
  1. UROMITEXAN [Suspect]
     Active Substance: MESNA
     Dosage: UNK
     Route: 042
     Dates: start: 20150307, end: 20150307
  2. HOLOXAN [Suspect]
     Active Substance: IFOSFAMIDE
     Indication: OSTEOSARCOMA
     Dosage: 5000MG/M^2, CYCLE NUMBER 5
     Route: 042
     Dates: start: 20150307, end: 20150317
  3. MERONEM [Concomitant]
     Active Substance: MEROPENEM
     Indication: SKIN INFECTION
     Dosage: 2G, TID
     Route: 042
     Dates: start: 201411
  4. MERONEM [Concomitant]
     Active Substance: MEROPENEM
     Dosage: 1 G, BID
     Dates: start: 201503
  5. EMEND [Suspect]
     Active Substance: APREPITANT
     Dosage: UNK
     Route: 048
     Dates: start: 20150306, end: 20150308
  6. DOXORUBICIN [Suspect]
     Active Substance: DOXORUBICIN
     Indication: OSTEOSARCOMA
     Dosage: 60 MG/M2, UNK / CYCLE NUMBER 5,
     Route: 042
     Dates: start: 20150306, end: 20150306
  7. ONDANSETRON HYDROCHLORIDE. [Concomitant]
     Active Substance: ONDANSETRON HYDROCHLORIDE
     Dosage: TID, TOTAL DAILY DOSE: 24MG
     Route: 042
     Dates: start: 20150306
  8. CISPLATIN. [Suspect]
     Active Substance: CISPLATIN
     Indication: OSTEOSARCOMA
     Dosage: 100 MG/M2, UNK
     Route: 042
     Dates: start: 20150306, end: 20150306
  9. METHYLPREDNISOLONE SODIUM SUCCINATE. [Suspect]
     Active Substance: METHYLPREDNISOLONE SODIUM SUCCINATE
     Dosage: 60 MG, QD
     Route: 042
     Dates: start: 20150306, end: 20150308

REACTIONS (3)
  - Confusional state [Recovered/Resolved]
  - Somnolence [Recovered/Resolved]
  - Encephalopathy [Recovered/Resolved]

NARRATIVE: CASE EVENT DATE: 20150307
